FAERS Safety Report 7637184-8 (Version None)
Quarter: 2011Q3

REPORT INFORMATION
  Report Type: 
  Country: None (occurrence: None)
  Receive Date: 20110726
  Receipt Date: 20110712
  Transmission Date: 20111222
  Serious: Yes (Other)
  Sender: FDA-Public Use
  Company Number: PHHY2011KR63925

PATIENT

DRUGS (2)
  1. CARBAMAZEPINE [Suspect]
  2. LABETALOL HYDROCHLORIDE [Concomitant]

REACTIONS (1)
  - ASTHMA [None]
